FAERS Safety Report 16925846 (Version 2)
Quarter: 2019Q4

REPORT INFORMATION
  Report Type: Spontaneous
  Country: RO (occurrence: RO)
  Receive Date: 20191016
  Receipt Date: 20191112
  Transmission Date: 20200122
  Serious: Yes (Other)
  Sender: FDA-Public Use
  Company Number: RO-CIRCASSIA PHARMACEUTICALS INC.-2019RO010262

PATIENT
  Age: 55 Year
  Sex: Male

DRUGS (2)
  1. DUAKLIR PRESSAIR [Suspect]
     Active Substance: ACLIDINIUM BROMIDE\FORMOTEROL FUMARATE
     Dosage: 340 MCG/12 MCG
     Route: 055
  2. DUAKLIR PRESSAIR [Suspect]
     Active Substance: ACLIDINIUM BROMIDE\FORMOTEROL FUMARATE
     Indication: CHRONIC OBSTRUCTIVE PULMONARY DISEASE
     Dosage: 340 MCG/12 MCG
     Route: 055
     Dates: start: 201808

REACTIONS (3)
  - Device issue [Unknown]
  - Drug ineffective [Unknown]
  - Asphyxia [Unknown]
